FAERS Safety Report 6897228-8 (Version None)
Quarter: 2010Q3

REPORT INFORMATION
  Report Type: 
  Country: None (occurrence: None)
  Receive Date: 20100802
  Receipt Date: 20070419
  Transmission Date: 20110219
  Serious: No
  Sender: FDA-Public Use
  Company Number: US-PFIZER INC-2007032135

PATIENT
  Sex: Female
  Weight: 83.181 kg

DRUGS (6)
  1. LYRICA [Suspect]
     Indication: NEURALGIA
     Route: 048
     Dates: start: 20060101
  2. CELEBREX [Concomitant]
     Dates: start: 20050101
  3. WELLBUTRIN [Concomitant]
     Dates: start: 20050101
  4. ZANAFLEX [Concomitant]
     Dates: start: 20050101
  5. VICODIN [Concomitant]
     Dates: start: 20040101, end: 20070301
  6. OXYCODONE [Concomitant]
     Dates: start: 20070301

REACTIONS (3)
  - CONSTIPATION [None]
  - GASTROINTESTINAL DISORDER [None]
  - WEIGHT INCREASED [None]
